FAERS Safety Report 10946955 (Version 1)
Quarter: 2015Q1

REPORT INFORMATION
  Report Type: Spontaneous
  Country: US (occurrence: US)
  Receive Date: 20150323
  Receipt Date: 20150323
  Transmission Date: 20150721
  Serious: Yes (Hospitalization, Other)
  Sender: FDA-Public Use
  Company Number: US-ELI_LILLY_AND_COMPANY-US201503007126

PATIENT
  Sex: Female

DRUGS (1)
  1. PROZAC [Suspect]
     Active Substance: FLUOXETINE HYDROCHLORIDE
     Indication: ANXIETY
     Dosage: 30 MG, QD
     Route: 048
     Dates: start: 200511

REACTIONS (4)
  - Prolonged rupture of membranes [Recovered/Resolved]
  - Prolonged labour [Recovered/Resolved]
  - Pyrexia [Recovered/Resolved]
  - Exposure during pregnancy [Recovered/Resolved]
